FAERS Safety Report 19425062 (Version 1)
Quarter: 2021Q2

REPORT INFORMATION
  Report Type: Spontaneous
  Country: US (occurrence: US)
  Receive Date: 20210616
  Receipt Date: 20210616
  Transmission Date: 20210717
  Serious: No
  Sender: FDA-Public Use
  Company Number: US-PFIZER INC-2018249604

PATIENT
  Age: 51 Year
  Sex: Female

DRUGS (2)
  1. LYRICA [Suspect]
     Active Substance: PREGABALIN
     Dosage: 375 MG, DAILY (2 CAPSULE TWICE A DAY AND 1 CAPS AT NOON 5 CAPS/DAY. THREE TIMES A DAY 30 DAYS)
     Route: 048
  2. LYRICA [Suspect]
     Active Substance: PREGABALIN
     Indication: FIBROMYALGIA
     Dosage: 5 DF, DAILY (2 CAPSULE BID AND 1 CAPS AT NOON?5 CAPS/DAY.THREE TIMES A DAY)

REACTIONS (1)
  - Illness [Unknown]
